FAERS Safety Report 7954807-4 (Version None)
Quarter: 2011Q4

REPORT INFORMATION
  Report Type: 
  Country: None (occurrence: None)
  Receive Date: 20111202
  Receipt Date: 20111129
  Transmission Date: 20120403
  Serious: Yes (Hospitalization)
  Sender: FDA-Public Use
  Company Number: IT-ELI_LILLY_AND_COMPANY-IT201111008934

PATIENT
  Sex: Male

DRUGS (8)
  1. CORDARONE [Concomitant]
     Indication: CONGESTIVE CARDIOMYOPATHY
     Dosage: 200 MG, UNKNOWN
     Route: 048
     Dates: start: 20090101, end: 20111022
  2. SEACOR [Concomitant]
     Indication: HYPERTENSION
     Dosage: 3 DF, UNKNOWN
     Route: 048
     Dates: start: 20090101, end: 20111022
  3. RAMIPRIL [Concomitant]
     Indication: HYPERTENSION
     Dosage: 5 MG, UNKNOWN
     Route: 048
     Dates: start: 20090101, end: 20111022
  4. EFFIENT [Suspect]
     Indication: CONGESTIVE CARDIOMYOPATHY
     Dosage: 10 MG, QD
     Route: 048
     Dates: start: 20110925, end: 20111022
  5. ASPIRIN [Concomitant]
     Indication: CONGESTIVE CARDIOMYOPATHY
     Dosage: 100 MG, UNKNOWN
     Route: 048
     Dates: start: 20090101, end: 20111022
  6. LASIX [Concomitant]
     Indication: HYPERTENSION
     Dosage: 50 MG, UNKNOWN
     Route: 048
     Dates: start: 20090101, end: 20111022
  7. ATORVASTATIN CALCIUM [Concomitant]
     Indication: HYPERTENSION
     Dosage: 80 MG, UNKNOWN
     Route: 048
     Dates: start: 20090101, end: 20111022
  8. ALDACTONE [Concomitant]
     Indication: HYPERTENSION
     Dosage: 50 MG, UNKNOWN
     Route: 048
     Dates: start: 20090101, end: 20111022

REACTIONS (1)
  - NEUTROPENIA [None]
